FAERS Safety Report 6566386-7 (Version None)
Quarter: 2010Q1

REPORT INFORMATION
  Report Type: 
  Country: None (occurrence: None)
  Receive Date: 20100127
  Receipt Date: 20100115
  Transmission Date: 20100710
  Serious: Yes (Other)
  Sender: FDA-Public Use
  Company Number: 2010-0211

PATIENT
  Age: 44 Year
  Sex: Male

DRUGS (3)
  1. APO-GO  (APOMORPHINE HYDROCHLORIDE) [Suspect]
     Indication: DRUG USE FOR UNKNOWN INDICATION
     Dosage: 3 MG
  2. REQUIP XL [Suspect]
  3. LEVODOPA [Concomitant]

REACTIONS (2)
  - DYSSTASIA [None]
  - LOSS OF CONSCIOUSNESS [None]
